FAERS Safety Report 17568871 (Version 1)
Quarter: 2020Q1

REPORT INFORMATION
  Report Type: Spontaneous
  Country: IT (occurrence: IT)
  Receive Date: 20200321
  Receipt Date: 20200321
  Transmission Date: 20200409
  Serious: Yes (Other)
  Sender: FDA-Public Use
  Company Number: IT-TEVA-2020-IT-1205001

PATIENT
  Age: 59 Year
  Sex: Female

DRUGS (9)
  1. AXAGON 40 MG COMPRESSE GASTRORESISTENTI [Concomitant]
  2. SINVACOR [Concomitant]
     Active Substance: SIMVASTATIN
     Dosage: 100 MG
  3. TIROSINT [Concomitant]
     Active Substance: LEVOTHYROXINE SODIUM
     Dosage: 100 MCG
  4. ZYLORIC [Concomitant]
     Active Substance: ALLOPURINOL
     Dosage: 300 MG
  5. SYMBICORT, 160 MICROGRAMMI/4,5 MICROGRAMMI/ INALAZIONE, POLVERE PER IN [Concomitant]
  6. DIBASE [Concomitant]
     Active Substance: CHOLECALCIFEROL
     Dosage: 30 GTT
  7. KCL RETARD [Concomitant]
     Active Substance: POTASSIUM CHLORIDE
  8. CALCITRIOL. [Suspect]
     Active Substance: CALCITRIOL
     Indication: HYPERPARATHYROIDISM SECONDARY
     Dosage: 0.25 MCG
     Route: 048
  9. TIROSINT [Concomitant]
     Active Substance: LEVOTHYROXINE SODIUM

REACTIONS (1)
  - Localised oedema [Recovered/Resolved]

NARRATIVE: CASE EVENT DATE: 20190710
